FAERS Safety Report 6292443-9 (Version None)
Quarter: 2009Q3

REPORT INFORMATION
  Report Type: 
  Country: None (occurrence: None)
  Receive Date: 20090730
  Receipt Date: 20090730
  Transmission Date: 20100115
  Serious: Yes (Other)
  Sender: FDA-Public Use
  Company Number: None

PATIENT
  Age: 57 Year
  Sex: Female
  Weight: 71.6683 kg

DRUGS (1)
  1. TRAZODONE HCL [Suspect]
     Indication: SLEEP DISORDER THERAPY
     Dosage: 1-2 EVERY NIGHT PO
     Route: 048
     Dates: start: 20050301, end: 20090614

REACTIONS (6)
  - ANXIETY [None]
  - CHILLS [None]
  - COLD SWEAT [None]
  - HEART RATE DECREASED [None]
  - PALPITATIONS [None]
  - TREMOR [None]
